FAERS Safety Report 7257643-X (Version None)
Quarter: 2011Q1

REPORT INFORMATION
  Report Type: 
  Country: None (occurrence: None)
  Receive Date: 20110129
  Receipt Date: 20100608
  Transmission Date: 20110831
  Serious: No
  Sender: FDA-Public Use
  Company Number: US-ABBOTT-10P-163-0649473-00

PATIENT
  Sex: Female

DRUGS (5)
  1. HUMIRA [Suspect]
     Dates: start: 20100531, end: 20100531
  2. PREDNISONE [Concomitant]
     Indication: COLITIS ULCERATIVE
     Route: 048
  3. HUMIRA [Suspect]
     Indication: CROHN'S DISEASE
     Dosage: 05/15/2010 160MG, 05/31/2010 TOOK 80MG, THEN 40MG QI5 DAYS
     Dates: start: 20100515, end: 20100515
  4. HUMIRA [Suspect]
  5. ACECAL [Concomitant]
     Indication: PRODUCT USED FOR UNKNOWN INDICATION
     Route: 048

REACTIONS (4)
  - COLITIS ULCERATIVE [None]
  - DIARRHOEA [None]
  - MUSCLE SPASMS [None]
  - HAEMORRHAGE [None]
